FAERS Safety Report 10524197 (Version 1)
Quarter: 2014Q4

REPORT INFORMATION
  Report Type: Spontaneous
  Country: US (occurrence: None)
  Receive Date: 20141015
  Receipt Date: 20141015
  Transmission Date: 20150528
  Serious: Yes (Other)
  Sender: FDA-Public Use
  Company Number: None

PATIENT
  Age: 62 Year
  Sex: Female
  Weight: 77.11 kg

DRUGS (1)
  1. DEXAMETHASONE. [Suspect]
     Active Substance: DEXAMETHASONE
     Indication: TOOTH INFECTION
     Dosage: 1 PILL ONCE DAILY TAKEN BY MOUTH
     Route: 048
     Dates: start: 20141009, end: 20141010

REACTIONS (12)
  - Chest pain [None]
  - Blood pressure increased [None]
  - Anxiety [None]
  - Headache [None]
  - Dysphagia [None]
  - Heart rate increased [None]
  - Abdominal pain upper [None]
  - Swelling [None]
  - Dizziness [None]
  - Musculoskeletal pain [None]
  - Throat tightness [None]
  - Oropharyngeal pain [None]

NARRATIVE: CASE EVENT DATE: 20141009
